FAERS Safety Report 6330676-3 (Version None)
Quarter: 2009Q3

REPORT INFORMATION
  Report Type: 
  Country: None (occurrence: None)
  Receive Date: 20090827
  Receipt Date: 20090819
  Transmission Date: 20100115
  Serious: Yes (Hospitalization)
  Sender: FDA-Public Use
  Company Number: CH-JNJFOC-20090805892

PATIENT
  Age: 75 Year
  Sex: Female

DRUGS (11)
  1. DURAGESIC-100 [Suspect]
     Indication: DRUG USE FOR UNKNOWN INDICATION
     Route: 062
  2. REMERON [Suspect]
     Indication: DRUG USE FOR UNKNOWN INDICATION
     Route: 048
  3. ANXIOLIT [Suspect]
     Indication: DRUG USE FOR UNKNOWN INDICATION
     Route: 048
  4. TEMESTA [Suspect]
     Indication: DRUG USE FOR UNKNOWN INDICATION
     Route: 048
  5. NEXIUM [Concomitant]
     Route: 048
  6. DAFALGAN [Concomitant]
     Route: 048
  7. LYRICA [Concomitant]
     Route: 048
  8. TORSEMIDE [Concomitant]
     Route: 048
  9. CLEXANE [Concomitant]
     Route: 058
  10. DOSPIR [Concomitant]
     Route: 055
  11. SERETIDE [Concomitant]
     Route: 055

REACTIONS (2)
  - ASPIRATION BRONCHIAL [None]
  - SEPTIC SHOCK [None]
